FAERS Safety Report 7263172-X (Version None)
Quarter: 2011Q1

REPORT INFORMATION
  Report Type: 
  Country: None (occurrence: None)
  Receive Date: 20110130
  Receipt Date: 20101011
  Transmission Date: 20110831
  Serious: No
  Sender: FDA-Public Use
  Company Number: US-ABBOTT-10P-163-0677796-00

PATIENT
  Age: 29 Year
  Sex: Female

DRUGS (6)
  1. IMITREX [Concomitant]
     Indication: MIGRAINE
  2. TRAMADOL HCL [Concomitant]
     Indication: PAIN
  3. METHOTREXATE [Concomitant]
     Indication: RHEUMATOID ARTHRITIS
  4. TRAMADOL HCL [Concomitant]
     Indication: FIBROMYALGIA
  5. HUMIRA [Suspect]
     Indication: RHEUMATOID ARTHRITIS
     Dates: start: 20100930
  6. CYMBALTA [Concomitant]
     Indication: DEPRESSION

REACTIONS (2)
  - VIRAL INFECTION [None]
  - COUGH [None]
